FAERS Safety Report 6061549-1 (Version None)
Quarter: 2009Q1

REPORT INFORMATION
  Report Type: 
  Country: None (occurrence: None)
  Receive Date: 20090129
  Receipt Date: 20090129
  Transmission Date: 20090719
  Serious: Yes (Other)
  Sender: FDA-Public Use
  Company Number: None

PATIENT
  Sex: Female
  Weight: 71.8044 kg

DRUGS (1)
  1. JANUVIA [Suspect]
     Indication: TYPE 2 DIABETES MELLITUS
     Dosage: 100MG DAILY PO
     Route: 048
     Dates: start: 20080901, end: 20081220

REACTIONS (2)
  - NASOPHARYNGITIS [None]
  - NO THERAPEUTIC RESPONSE [None]
